FAERS Safety Report 14537527 (Version 1)
Quarter: 2018Q1

REPORT INFORMATION
  Report Type: Spontaneous
  Country: US (occurrence: US)
  Receive Date: 20180215
  Receipt Date: 20180215
  Transmission Date: 20180509
  Serious: No
  Sender: FDA-Public Use
  Company Number: US-IMPAX LABORATORIES, INC-2016-IPXL-00754

PATIENT
  Sex: Male

DRUGS (5)
  1. PYRIDOSTIGMINE BROMIDE. [Suspect]
     Active Substance: PYRIDOSTIGMINE BROMIDE
     Dosage: 60 MG,  4 /DAY
     Route: 048
     Dates: start: 201606
  2. PYRIDOSTIGMINE BROMIDE. [Suspect]
     Active Substance: PYRIDOSTIGMINE BROMIDE
     Indication: MYASTHENIC SYNDROME
     Dosage: 60 MG,  4 /DAY
     Route: 048
     Dates: start: 201501
  3. IMMUNOGLOBULIN (IMMUNOGLOBULIN HUMAN NORMAL) [Concomitant]
     Active Substance: HUMAN IMMUNOGLOBULIN G
     Indication: MYASTHENIC SYNDROME
     Dosage: UNK
     Route: 042
     Dates: start: 201505, end: 20160701
  4. RITUXAN [Concomitant]
     Active Substance: RITUXIMAB
     Indication: MYASTHENIC SYNDROME
     Dosage: 1000 MG, UNK
     Route: 065
     Dates: start: 201501
  5. 3,4-DIAMINOPYRIDINE [Concomitant]
     Indication: MYASTHENIC SYNDROME
     Dosage: 10 MG, UNK
     Route: 065
     Dates: start: 201501

REACTIONS (2)
  - Product substitution issue [Unknown]
  - Abdominal discomfort [Recovered/Resolved]
